FAERS Safety Report 5574827-7 (Version None)
Quarter: 2007Q4

REPORT INFORMATION
  Report Type: 
  Country: None (occurrence: None)
  Receive Date: 20071221
  Receipt Date: 20071221
  Transmission Date: 20080405
  Serious: Yes (Other)
  Sender: FDA-Public Use
  Company Number: None

PATIENT
  Sex: Female
  Weight: 54.54 kg

DRUGS (1)
  1. MORPHINE [Suspect]
     Dosage: 2MG Q4H PRN PAIN

REACTIONS (2)
  - NAUSEA [None]
  - VOMITING [None]
